FAERS Safety Report 5793911-6 (Version None)
Quarter: 2008Q2

REPORT INFORMATION
  Report Type: 
  Country: None (occurrence: None)
  Receive Date: 20080627
  Receipt Date: 20080605
  Transmission Date: 20081010
  Serious: Yes (Other)
  Sender: FDA-Public Use
  Company Number: FR-PFIZER INC-2008006019

PATIENT
  Sex: Male
  Weight: 62 kg

DRUGS (1)
  1. TAHOR [Suspect]
     Indication: MYOCARDIAL INFARCTION

REACTIONS (1)
  - CELL DEATH [None]
